FAERS Safety Report 5136657-X (Version None)
Quarter: 2006Q4

REPORT INFORMATION
  Report Type: 
  Country: None (occurrence: None)
  Receive Date: 20061023
  Receipt Date: 20061012
  Transmission Date: 20070319
  Serious: Yes (Hospitalization, Other)
  Sender: FDA-Public Use
  Company Number: 2006126773

PATIENT
  Sex: Female
  Weight: 65.7716 kg

DRUGS (2)
  1. CELEBREX [Suspect]
     Indication: ARTHRITIS
     Dosage: (2 IN 1 D)
     Dates: start: 19990101
  2. INDERAL [Concomitant]

REACTIONS (3)
  - CARDIAC OPERATION [None]
  - DYSPEPSIA [None]
  - ULTRASOUND DOPPLER ABNORMAL [None]
